APPROVED DRUG PRODUCT: CLONIDINE HYDROCHLORIDE
Active Ingredient: CLONIDINE HYDROCHLORIDE
Strength: 0.1MG
Dosage Form/Route: TABLET, EXTENDED RELEASE;ORAL
Application: A203320 | Product #001 | TE Code: AB1
Applicant: ACTAVIS ELIZABETH LLC AN INDIRECT WHOLLY OWNED SUB OF TEVA PHARMACEUTICALS USA INC
Approved: May 15, 2015 | RLD: No | RS: No | Type: RX